FAERS Safety Report 16086123 (Version 1)
Quarter: 2019Q1

REPORT INFORMATION
  Report Type: Spontaneous
  Country: FR (occurrence: FR)
  Receive Date: 20190318
  Receipt Date: 20190318
  Transmission Date: 20190418
  Serious: Yes (Life-Threatening, Hospitalization, Other)
  Sender: FDA-Public Use
  Company Number: FR-OSMOTICA_PHARMACEUTICAL_US_LLC-POI0573201900111

PATIENT
  Age: 64 Year
  Sex: Female
  Weight: 116 kg

DRUGS (9)
  1. DIVIGEL [Suspect]
     Active Substance: ESTRADIOL
     Indication: SALPINGO-OOPHORECTOMY
  2. VALIUM [Concomitant]
     Active Substance: DIAZEPAM
     Indication: PRODUCT USED FOR UNKNOWN INDICATION
  3. ANAFRANIL [Concomitant]
     Active Substance: CLOMIPRAMINE HYDROCHLORIDE
     Indication: PRODUCT USED FOR UNKNOWN INDICATION
     Route: 048
     Dates: start: 20160415, end: 20160422
  4. SEROPLEX [Concomitant]
     Active Substance: ESCITALOPRAM OXALATE
     Indication: MENTAL DISORDER
     Route: 048
     Dates: start: 20160413, end: 20160415
  5. DIVIGEL [Suspect]
     Active Substance: ESTRADIOL
     Indication: HYSTERECTOMY
     Dates: start: 2005, end: 2016
  6. LEXOMIL [Concomitant]
     Active Substance: BROMAZEPAM
     Indication: PRODUCT USED FOR UNKNOWN INDICATION
     Route: 048
     Dates: start: 20160413, end: 201605
  7. OLANZAPINE SANDOZ [Suspect]
     Active Substance: OLANZAPINE
     Indication: MAJOR DEPRESSION
     Route: 048
     Dates: start: 20160413, end: 20160415
  8. SOLIAN [Concomitant]
     Active Substance: AMISULPRIDE
     Indication: PRODUCT USED FOR UNKNOWN INDICATION
     Route: 048
     Dates: start: 20160415, end: 20160422
  9. LEPTICUR [Concomitant]
     Active Substance: TROPATEPINE HYDROCHLORIDE
     Indication: PRODUCT USED FOR UNKNOWN INDICATION

REACTIONS (12)
  - Ventricular dyskinesia [Unknown]
  - Hypotension [Unknown]
  - Right ventricular dilatation [Unknown]
  - Cardiogenic shock [Unknown]
  - Depression [Unknown]
  - Immobile [Unknown]
  - Pulmonary embolism [Recovered/Resolved]
  - Phlebitis [Unknown]
  - Dyspnoea [Unknown]
  - Major depression [Unknown]
  - Cor pulmonale acute [Unknown]
  - Acute psychosis [Unknown]

NARRATIVE: CASE EVENT DATE: 20160413
